FAERS Safety Report 13180114 (Version 2)
Quarter: 2017Q1

REPORT INFORMATION
  Report Type: Spontaneous
  Country: MX (occurrence: MX)
  Receive Date: 20170202
  Receipt Date: 20170210
  Transmission Date: 20170428
  Serious: No
  Sender: FDA-Public Use
  Company Number: MX-009507513-1701MEX011630

PATIENT
  Age: 15 Year
  Sex: Female
  Weight: 48 kg

DRUGS (1)
  1. IMPLANON [Suspect]
     Active Substance: ETONOGESTREL
     Dosage: 1 IMPLANT, UNK
     Route: 059
     Dates: start: 20160830

REACTIONS (5)
  - Pain in extremity [Unknown]
  - Chest pain [Unknown]
  - Dyspnoea [Unknown]
  - Chest discomfort [Unknown]
  - Blood pressure abnormal [Unknown]
